FAERS Safety Report 4658947-7 (Version None)
Quarter: 2005Q2

REPORT INFORMATION
  Report Type: 
  Country: None (occurrence: None)
  Receive Date: 20050509
  Receipt Date: 20050425
  Transmission Date: 20051028
  Serious: Yes (Other)
  Sender: FDA-Public Use
  Company Number: 2005066021

PATIENT
  Age: 40 Year
  Sex: Female
  Weight: 97.5234 kg

DRUGS (4)
  1. BEXTRA [Suspect]
     Indication: FIBROMYALGIA
     Dosage: (20 MG), ORAL
     Route: 048
     Dates: start: 20030901
  2. ZOLPIDEM TARTRATE [Concomitant]
  3. VENLAFAXINE HCL [Concomitant]
  4. VALSARTAN [Concomitant]

REACTIONS (3)
  - RASH [None]
  - SCAR [None]
  - SECRETION DISCHARGE [None]
